FAERS Safety Report 5538459-9 (Version None)
Quarter: 2007Q4

REPORT INFORMATION
  Report Type: 
  Country: None (occurrence: None)
  Receive Date: 20071205
  Receipt Date: 20071120
  Transmission Date: 20080405
  Serious: Yes (Hospitalization)
  Sender: FDA-Public Use
  Company Number: 2007PV000046

PATIENT
  Age: 65 Year
  Sex: Female

DRUGS (1)
  1. DEPOCYT [Suspect]
     Indication: CENTRAL NERVOUS SYSTEM LYMPHOMA
     Dosage: 50 MG;X4
     Dates: end: 20070927

REACTIONS (2)
  - CAUDA EQUINA SYNDROME [None]
  - NEUROTOXICITY [None]
